FAERS Safety Report 8079638-9 (Version None)
Quarter: 2012Q1

REPORT INFORMATION
  Report Type: 
  Country: None (occurrence: None)
  Receive Date: 20120128
  Receipt Date: 20110802
  Transmission Date: 20120608
  Serious: No
  Sender: FDA-Public Use
  Company Number: US-ABBOTT-11P-163-0843384-00

PATIENT
  Sex: Female
  Weight: 85.352 kg

DRUGS (2)
  1. HUMIRA [Suspect]
     Indication: PSORIATIC ARTHROPATHY
     Route: 058
     Dates: start: 20110202
  2. IMODIUM [Concomitant]
     Indication: COLECTOMY
     Route: 048
     Dates: start: 19950101

REACTIONS (1)
  - TYPE 2 DIABETES MELLITUS [None]
